FAERS Safety Report 26035767 (Version 1)
Quarter: 2025Q4

REPORT INFORMATION
  Report Type: Spontaneous
  Country: GB (occurrence: None)
  Receive Date: 20251112
  Receipt Date: 20251112
  Transmission Date: 20260117
  Serious: Yes (Other)
  Sender: ORGANON
  Company Number: None

PATIENT
  Sex: Male

DRUGS (1)
  1. FINASTERIDE [Suspect]
     Active Substance: FINASTERIDE
     Indication: Alopecia
     Dosage: ONE A DAY
     Dates: start: 20230325, end: 20250331

REACTIONS (1)
  - Varicocele [Not Recovered/Not Resolved]

NARRATIVE: CASE EVENT DATE: 20230330
